FAERS Safety Report 16667537 (Version 2)
Quarter: 2020Q1

REPORT INFORMATION
  Report Type: Spontaneous
  Country: US (occurrence: US)
  Receive Date: 20190805
  Receipt Date: 20200325
  Transmission Date: 20200409
  Serious: Yes (Other)
  Sender: FDA-Public Use
  Company Number: US-GILEAD-2019-0421610

PATIENT
  Age: 47 Year
  Sex: Female

DRUGS (2)
  1. ODEFSEY [Concomitant]
     Active Substance: EMTRICITABINE\RILPIVIRINE HYDROCHLORIDE\TENOFOVIR ALAFENAMIDE FUMARATE
  2. COMPLERA [Suspect]
     Active Substance: EMTRICITABINE\RILPIVIRINE HYDROCHLORIDE\TENOFOVIR DISOPROXIL FUMARATE
     Indication: HIV INFECTION
     Dosage: UNK
     Route: 048
     Dates: start: 201109, end: 20170625

REACTIONS (8)
  - Bone density decreased [Unknown]
  - Pain [Unknown]
  - Emotional distress [Unknown]
  - Chronic kidney disease [Not Recovered/Not Resolved]
  - Multiple fractures [Not Recovered/Not Resolved]
  - Economic problem [Unknown]
  - Anxiety [Unknown]
  - Anhedonia [Unknown]

NARRATIVE: CASE EVENT DATE: 201809
